FAERS Safety Report 8313682-9 (Version None)
Quarter: 2012Q2

REPORT INFORMATION
  Report Type: 
  Country: None (occurrence: None)
  Receive Date: 20120426
  Receipt Date: 20120420
  Transmission Date: 20120825
  Serious: Yes (Hospitalization)
  Sender: FDA-Public Use
  Company Number: US-ELI_LILLY_AND_COMPANY-US201204007528

PATIENT
  Age: 52 Year
  Sex: Male

DRUGS (1)
  1. AXIRON [Suspect]
     Indication: HYPOGONADISM
     Dosage: 60 MG, UNK

REACTIONS (3)
  - SYNCOPE [None]
  - TACHYCARDIA [None]
  - BLOOD TESTOSTERONE DECREASED [None]
